FAERS Safety Report 15530241 (Version 1)
Quarter: 2018Q4

REPORT INFORMATION
  Report Type: Spontaneous
  Country: RO (occurrence: RO)
  Receive Date: 20181018
  Receipt Date: 20181018
  Transmission Date: 20190205
  Serious: Yes (Hospitalization)
  Sender: FDA-Public Use
  Company Number: RO-PFIZER INC-2018422487

PATIENT
  Age: 64 Year
  Sex: Female
  Weight: 52 kg

DRUGS (7)
  1. DICLOFENAC [Concomitant]
     Active Substance: DICLOFENAC
     Dosage: UNK, 1X/DAY (IN THE MORNING)
  2. SUTENT [Suspect]
     Active Substance: SUNITINIB MALATE
     Indication: METASTATIC RENAL CELL CARCINOMA
     Dosage: 50 MG, CYCLIC (DAILY, 28 DAYS ON/14 DAYS OFF)
     Dates: end: 20180916
  3. TAVANIC [Concomitant]
     Active Substance: LEVOFLOXACIN
     Dosage: UNK, 1X/DAY (IN THE EVENING, FOR 7 DAYS)
  4. OMEZ [OMEPRAZOLE] [Concomitant]
     Dosage: UNK, 1X/DAY (IN THE MORNING)
  5. OXYGEN. [Concomitant]
     Active Substance: OXYGEN
  6. DUPHALAC [Concomitant]
     Active Substance: LACTULOSE
     Dosage: 25 ML, 1X/DAY (IN THE MORNING)
  7. METOPROLOL. [Concomitant]
     Active Substance: METOPROLOL
     Dosage: UNK, 1X/DAY (IN THE MORNING)

REACTIONS (5)
  - Pleurisy [Unknown]
  - Fatigue [Unknown]
  - Dyspnoea [Unknown]
  - General physical health deterioration [Unknown]
  - Cough [Unknown]

NARRATIVE: CASE EVENT DATE: 20180915
